FAERS Safety Report 8951128 (Version 1)
Quarter: 2012Q4

REPORT INFORMATION
  Report Type: Spontaneous
  Country: US (occurrence: None)
  Receive Date: 20121130
  Receipt Date: 20121130
  Transmission Date: 20130627
  Serious: Yes (Other)
  Sender: FDA-Public Use
  Company Number: USA/USA/12/0026825

PATIENT
  Age: 23 Year
  Sex: Male

DRUGS (1)
  1. MINOCYCLINE HYDROCHLORIDE [Suspect]
     Indication: VASCULITIS

REACTIONS (10)
  - Polyarteritis nodosa [None]
  - Hypertension [None]
  - Renal failure acute [None]
  - Weight decreased [None]
  - Rash [None]
  - Headache [None]
  - Focal segmental glomerulosclerosis [None]
  - Kidney fibrosis [None]
  - Renal tubular atrophy [None]
  - Renal aneurysm [None]
